FAERS Safety Report 5188757-6 (Version None)
Quarter: 2006Q4

REPORT INFORMATION
  Report Type: 
  Country: None (occurrence: None)
  Receive Date: 20061221
  Receipt Date: 20061123
  Transmission Date: 20070319
  Serious: Yes (Other)
  Sender: FDA-Public Use
  Company Number: IE-ABBOTT-06P-229-0351532-00

PATIENT
  Sex: Female

DRUGS (16)
  1. EPILIM [Suspect]
     Indication: EPILEPSY
     Route: 048
     Dates: start: 20050601
  2. ALPRAZOLAM [Interacting]
     Indication: ANXIETY
     Route: 048
     Dates: start: 20061110, end: 20061111
  3. ALPRAZOLAM [Interacting]
     Dates: start: 20061110, end: 20061111
  4. ETHOSUXIMIDE [Concomitant]
     Indication: DRUG USE FOR UNKNOWN INDICATION
  5. PANTOPRAZOLE SODIUM [Concomitant]
     Indication: DRUG USE FOR UNKNOWN INDICATION
  6. SALMETEROL [Concomitant]
     Indication: DRUG USE FOR UNKNOWN INDICATION
  7. BECLOMETHASONE DIPROPIONATE [Concomitant]
     Indication: DRUG USE FOR UNKNOWN INDICATION
  8. CETIRIZINE HCL [Concomitant]
     Indication: DRUG USE FOR UNKNOWN INDICATION
  9. PRIMIDONE [Concomitant]
     Indication: DRUG USE FOR UNKNOWN INDICATION
  10. ALENDRONATE SODIUM [Concomitant]
     Indication: DRUG USE FOR UNKNOWN INDICATION
  11. DESLORATADINE [Concomitant]
     Indication: DRUG USE FOR UNKNOWN INDICATION
  12. PREDNISOLONE [Concomitant]
     Indication: DRUG USE FOR UNKNOWN INDICATION
  13. MONTELUKAST [Concomitant]
     Indication: DRUG USE FOR UNKNOWN INDICATION
  14. CHLORPHENIRAMINE MALEATE [Concomitant]
     Indication: DRUG USE FOR UNKNOWN INDICATION
  15. CALCIUM CARBONATE [Concomitant]
     Indication: DRUG USE FOR UNKNOWN INDICATION
  16. EPINEPHRINE [Concomitant]
     Indication: DRUG USE FOR UNKNOWN INDICATION

REACTIONS (3)
  - CONVULSION [None]
  - DRUG INEFFECTIVE [None]
  - DRUG INTERACTION [None]
